FAERS Safety Report 7002046-6 (Version None)
Quarter: 2010Q3

REPORT INFORMATION
  Report Type: 
  Country: None (occurrence: None)
  Receive Date: 20100917
  Receipt Date: 20100917
  Transmission Date: 20110219
  Serious: No
  Sender: FDA-Public Use
  Company Number: None

PATIENT
  Age: 78 Year
  Sex: Female
  Weight: 78.9259 kg

DRUGS (2)
  1. CARDIZEM CD [Suspect]
     Indication: ATRIAL FIBRILLATION
     Dosage: 360 MG 1 A DAY
     Dates: start: 20100806, end: 20100813
  2. CARDIZEM CD [Suspect]
     Indication: HYPERTENSION
     Dosage: 360 MG 1 A DAY
     Dates: start: 20100806, end: 20100813

REACTIONS (3)
  - BLOOD PRESSURE INCREASED [None]
  - DRUG INEFFECTIVE [None]
  - PRODUCT FORMULATION ISSUE [None]
